FAERS Safety Report 6743508-6 (Version None)
Quarter: 2010Q2

REPORT INFORMATION
  Report Type: 
  Country: None (occurrence: None)
  Receive Date: 20100526
  Receipt Date: 20100526
  Transmission Date: 20101027
  Serious: Yes (Life-Threatening)
  Sender: FDA-Public Use
  Company Number: None

PATIENT
  Sex: Female

DRUGS (1)
  1. TRALI [Suspect]
     Indication: HYPOCHROMIC ANAEMIA
     Dosage: 50 ML, LEUKOCYTE-REDUCED ONCE
     Dates: start: 20100108, end: 20100108

REACTIONS (1)
  - TRANSFUSION-RELATED ACUTE LUNG INJURY [None]
